FAERS Safety Report 6260222-4 (Version None)
Quarter: 2009Q3

REPORT INFORMATION
  Report Type: 
  Country: None (occurrence: None)
  Receive Date: 20090708
  Receipt Date: 20090304
  Transmission Date: 20100115
  Serious: Yes (Hospitalization)
  Sender: FDA-Public Use
  Company Number: B0582737A

PATIENT
  Age: 56 Year
  Sex: Female
  Weight: 79 kg

DRUGS (5)
  1. OMACOR [Suspect]
     Dosage: 1000MG PER DAY
     Route: 048
     Dates: start: 20040221
  2. BETA BLOCKER [Concomitant]
  3. ASPIRIN [Concomitant]
  4. ACE INHIBITOR [Concomitant]
  5. STATINS [Concomitant]

REACTIONS (1)
  - AORTIC BYPASS [None]
